FAERS Safety Report 9865269 (Version 1)
Quarter: 2014Q1

REPORT INFORMATION
  Report Type: Spontaneous
  Country: US (occurrence: US)
  Receive Date: 20140203
  Receipt Date: 20140203
  Transmission Date: 20141002
  Serious: No
  Sender: FDA-Public Use
  Company Number: US-ALLERGAN-1301168US

PATIENT
  Age: 77 Year
  Sex: Female

DRUGS (4)
  1. RESTASIS [Suspect]
     Indication: DRY EYE
     Dosage: 2 GTT, UNK
     Route: 047
  2. OTC EYEDROP [Concomitant]
     Indication: DRY EYE
     Route: 047
  3. WEEKLY MEDICATION FOR OSTEOPENIA NOS [Concomitant]
     Indication: OSTEOPENIA
     Dosage: UNK
     Route: 048
  4. SIMVASTATIN [Concomitant]
     Indication: BLOOD CHOLESTEROL INCREASED
     Dosage: UNK
     Route: 048

REACTIONS (2)
  - Dry eye [Unknown]
  - Ocular hyperaemia [Unknown]
